FAERS Safety Report 17490492 (Version 1)
Quarter: 2020Q1

REPORT INFORMATION
  Report Type: Spontaneous
  Country: US (occurrence: US)
  Receive Date: 20200303
  Receipt Date: 20200303
  Transmission Date: 20200409
  Serious: No
  Sender: FDA-Public Use
  Company Number: US-AKORN PHARMACEUTICALS-2019AKN00842

PATIENT
  Age: 35 Year
  Sex: Female
  Weight: 60.6 kg

DRUGS (5)
  1. MYORISAN [Suspect]
     Active Substance: ISOTRETINOIN
     Indication: SCAR
     Dosage: 40 MG, 1X/DAY ^IN THE MORNING^
     Dates: start: 20181203, end: 20190311
  2. MYORISAN [Suspect]
     Active Substance: ISOTRETINOIN
     Indication: ACNE
     Dosage: 40 MG, 1X/DAY
     Dates: start: 20180928, end: 20181203
  3. MYORISAN [Suspect]
     Active Substance: ISOTRETINOIN
     Indication: SCAR
  4. UNSPECIFIED BIRTH CONTROL PILLS [Concomitant]
     Active Substance: UNSPECIFIED INGREDIENT
  5. MYORISAN [Suspect]
     Active Substance: ISOTRETINOIN
     Indication: ACNE
     Dosage: 20 MG, 1X/DAY ^IN THE EVENING^
     Dates: start: 20181203, end: 201901

REACTIONS (3)
  - Dry eye [Recovering/Resolving]
  - Off label use [Recovered/Resolved]
  - Blepharitis [Recovering/Resolving]

NARRATIVE: CASE EVENT DATE: 20180928
